FAERS Safety Report 8217258-3 (Version None)
Quarter: 2012Q1

REPORT INFORMATION
  Report Type: 
  Country: None (occurrence: None)
  Receive Date: 20120319
  Receipt Date: 20120312
  Transmission Date: 20120608
  Serious: Yes (Other)
  Sender: FDA-Public Use
  Company Number: US-PFIZER INC-2012063814

PATIENT
  Sex: Male
  Weight: 90.703 kg

DRUGS (7)
  1. LANTUS [Concomitant]
     Indication: DIABETES MELLITUS
     Dosage: UNK
  2. LISINOPRIL [Concomitant]
     Indication: HYPERTENSION
     Dosage: UNK
  3. IBUPROFEN (ADVIL) [Suspect]
     Dosage: 200 MG, 2X/DAY
     Route: 048
     Dates: start: 20120201, end: 20120308
  4. IBUPROFEN (ADVIL) [Suspect]
     Indication: PAIN
     Dosage: 200 MG, 2X/DAY
     Route: 048
     Dates: start: 20120201, end: 20120308
  5. LASIX [Concomitant]
     Indication: OEDEMA PERIPHERAL
     Dosage: UNK
  6. HUMALOG [Concomitant]
     Indication: DIABETES MELLITUS
     Dosage: UNK
  7. SIMVASTATIN [Concomitant]
     Dosage: UNK

REACTIONS (4)
  - PRURITUS [None]
  - CONTUSION [None]
  - RASH [None]
  - BLISTER [None]
